FAERS Safety Report 5502995-1 (Version None)
Quarter: 2007Q4

REPORT INFORMATION
  Report Type: 
  Country: None (occurrence: None)
  Receive Date: 20071029
  Receipt Date: 20071029
  Transmission Date: 20080405
  Serious: Yes (Life-Threatening, Hospitalization, Disabling)
  Sender: FDA-Public Use
  Company Number: None

PATIENT
  Age: 56 Year
  Sex: Male
  Weight: 78 kg

DRUGS (1)
  1. VIAGRA [Suspect]
     Indication: SEXUAL DYSFUNCTION
     Dosage: 25 OR 50 MILIGRAMS SPORADIC PO
     Route: 048
     Dates: start: 20000303, end: 20000529

REACTIONS (5)
  - ACUTE MYOCARDIAL INFARCTION [None]
  - NIGHT SWEATS [None]
  - PAIN IN JAW [None]
  - TRISMUS [None]
  - VOMITING [None]
